FAERS Safety Report 7768000-1 (Version None)
Quarter: 2011Q3

REPORT INFORMATION
  Report Type: 
  Country: None (occurrence: None)
  Receive Date: 20110922
  Receipt Date: 20110711
  Transmission Date: 20111222
  Serious: No
  Sender: FDA-Public Use
  Company Number: US-ASTRAZENECA-2011SE41501

PATIENT
  Age: 31 Year
  Sex: Male

DRUGS (5)
  1. LAMICTAL [Concomitant]
     Dosage: DAILY
     Route: 048
  2. SEROQUEL [Suspect]
     Indication: BIPOLAR DISORDER
     Route: 048
     Dates: start: 20091101, end: 20110702
  3. SEROQUEL [Suspect]
     Indication: SCHIZOPHRENIA
     Route: 048
     Dates: start: 20091101, end: 20110702
  4. ALPRAZOLAM [Concomitant]
     Indication: ANXIETY
     Dosage: DAILY
     Route: 048
  5. ADDERALL 5 [Concomitant]
     Indication: ATTENTION DEFICIT/HYPERACTIVITY DISORDER
     Dosage: DAILY
     Route: 048

REACTIONS (8)
  - FEELING JITTERY [None]
  - HYPERHIDROSIS [None]
  - RESTLESSNESS [None]
  - IRRITABILITY [None]
  - DRUG DOSE OMISSION [None]
  - MANIA [None]
  - INSOMNIA [None]
  - MALAISE [None]
